FAERS Safety Report 11847498 (Version 1)
Quarter: 2015Q4

REPORT INFORMATION
  Report Type: Spontaneous
  Country: JP (occurrence: JP)
  Receive Date: 20151217
  Receipt Date: 20151217
  Transmission Date: 20160305
  Serious: Yes (Hospitalization)
  Sender: FDA-Public Use
  Company Number: JP-B.I. PHARMACEUTICALS,INC./RIDGEFIELD-2015-BI-69914NB

PATIENT
  Age: 82 Year
  Sex: Male

DRUGS (13)
  1. URIEF [Concomitant]
     Active Substance: SILODOSIN
     Indication: PRODUCT USED FOR UNKNOWN INDICATION
     Route: 048
  2. NORVASC [Concomitant]
     Active Substance: AMLODIPINE BESYLATE
     Indication: PRODUCT USED FOR UNKNOWN INDICATION
     Route: 065
  3. MEPTIN [Concomitant]
     Active Substance: PROCATEROL HYDROCHLORIDE
     Indication: PRODUCT USED FOR UNKNOWN INDICATION
     Route: 055
  4. SPIRIVA [Suspect]
     Active Substance: TIOTROPIUM BROMIDE MONOHYDRATE
     Indication: PRODUCT USED FOR UNKNOWN INDICATION
     Dosage: 5 MCG
     Route: 055
     Dates: start: 201403
  5. MUCODYNE [Concomitant]
     Active Substance: CARBOCYSTEINE
     Indication: PRODUCT USED FOR UNKNOWN INDICATION
     Route: 065
  6. SPIRONOLACTONE. [Concomitant]
     Active Substance: SPIRONOLACTONE
     Indication: PRODUCT USED FOR UNKNOWN INDICATION
     Route: 065
  7. LASIX [Concomitant]
     Active Substance: FUROSEMIDE
     Indication: PRODUCT USED FOR UNKNOWN INDICATION
     Route: 065
  8. ADOAIR [Concomitant]
     Active Substance: FLUTICASONE PROPIONATE\SALMETEROL XINAFOATE
     Indication: PRODUCT USED FOR UNKNOWN INDICATION
     Route: 055
  9. AVOLVE [Concomitant]
     Active Substance: DUTASTERIDE
     Indication: PRODUCT USED FOR UNKNOWN INDICATION
     Route: 048
  10. MUCOFILIN [Concomitant]
     Indication: PRODUCT USED FOR UNKNOWN INDICATION
     Route: 065
  11. ALOSENN [Concomitant]
     Active Substance: SENNA LEAF
     Indication: PRODUCT USED FOR UNKNOWN INDICATION
     Route: 065
  12. HOKUNALIN:TAPE [Concomitant]
     Active Substance: TULOBUTEROL
     Indication: PRODUCT USED FOR UNKNOWN INDICATION
     Route: 065
  13. THEO-DUR [Concomitant]
     Active Substance: THEOPHYLLINE ANHYDROUS
     Indication: PRODUCT USED FOR UNKNOWN INDICATION
     Route: 065

REACTIONS (2)
  - Unevaluable event [Unknown]
  - Drug ineffective [Unknown]
